FAERS Safety Report 6191156-1 (Version None)
Quarter: 2009Q2

REPORT INFORMATION
  Report Type: 
  Country: None (occurrence: None)
  Receive Date: 20090515
  Receipt Date: 20090512
  Transmission Date: 20091009
  Serious: Yes (Life-Threatening)
  Sender: FDA-Public Use
  Company Number: NL-JNJFOC-20090500524

PATIENT
  Age: 49 Year
  Sex: Male

DRUGS (5)
  1. HALOPERIDOL [Suspect]
     Indication: DRUG USE FOR UNKNOWN INDICATION
     Route: 065
  2. ANTIVIRALS NOS [Concomitant]
     Indication: ENCEPHALITIS VIRAL
     Route: 065
  3. SALMETEROL/FLUTICASONE [Concomitant]
     Route: 065
  4. FEXOFENADINE [Concomitant]
     Route: 065
  5. TEMAZEPAM [Concomitant]
     Route: 065

REACTIONS (1)
  - SPASMODIC DYSPHONIA [None]
